FAERS Safety Report 9356929 (Version 2)
Quarter: 2014Q1

REPORT INFORMATION
  Report Type: Report from Study
  Country: AR (occurrence: AR)
  Receive Date: 20130620
  Receipt Date: 20140116
  Transmission Date: 20141002
  Serious: Yes (Death, Hospitalization, Other)
  Sender: FDA-Public Use
  Company Number: AR-ROCHE-1239271

PATIENT
  Age: 85 Year
  Sex: Male

DRUGS (2)
  1. RANIBIZUMAB [Suspect]
     Indication: PRODUCT USED FOR UNKNOWN INDICATION
     Route: 050
     Dates: start: 20111206, end: 20120216
  2. RANIBIZUMAB [Suspect]
     Route: 050
     Dates: start: 20120216

REACTIONS (2)
  - Multiple injuries [Fatal]
  - Cardio-respiratory arrest [Unknown]
